FAERS Safety Report 11052892 (Version 2)
Quarter: 2015Q2

REPORT INFORMATION
  Report Type: Spontaneous
  Country: US (occurrence: US)
  Receive Date: 20150421
  Receipt Date: 20150525
  Transmission Date: 20150821
  Serious: No
  Sender: FDA-Public Use
  Company Number: US-JNJFOC-20131018196

PATIENT
  Age: 18 Year
  Sex: Male

DRUGS (1)
  1. RISPERDAL [Suspect]
     Active Substance: RISPERIDONE
     Indication: SLEEP DISORDER
     Dosage: VARYING DOSES OF 0.5, 1 AND 2 MG
     Route: 048
     Dates: start: 2002, end: 201310

REACTIONS (5)
  - Abnormal weight gain [Unknown]
  - Product use issue [Unknown]
  - Gynaecomastia [Not Recovered/Not Resolved]
  - Breast pain [Unknown]
  - Emotional distress [Unknown]

NARRATIVE: CASE EVENT DATE: 201310
